FAERS Safety Report 5501161-3 (Version None)
Quarter: 2007Q4

REPORT INFORMATION
  Report Type: 
  Country: None (occurrence: None)
  Receive Date: 20071029
  Receipt Date: 20071026
  Transmission Date: 20080405
  Serious: No
  Sender: FDA-Public Use
  Company Number: US-BOEHRINGER INGELHEIM PHARMACEUTICALS, INC.-2007-BP-21587BP

PATIENT
  Sex: Male

DRUGS (2)
  1. FLOMAX [Suspect]
     Indication: BENIGN PROSTATIC HYPERPLASIA
     Route: 048
     Dates: start: 20060101
  2. AVODART [Suspect]
     Indication: BENIGN PROSTATIC HYPERPLASIA

REACTIONS (7)
  - DIZZINESS [None]
  - DIZZINESS POSTURAL [None]
  - DYSARTHRIA [None]
  - FALL [None]
  - HEAD INJURY [None]
  - MIDDLE EAR EFFUSION [None]
  - SLEEP APNOEA SYNDROME [None]
